FAERS Safety Report 7691499-6 (Version None)
Quarter: 2011Q3

REPORT INFORMATION
  Report Type: 
  Country: None (occurrence: None)
  Receive Date: 20110817
  Receipt Date: 20110817
  Transmission Date: 20111222
  Serious: Yes (Hospitalization)
  Sender: FDA-Public Use
  Company Number: None

PATIENT
  Sex: Female
  Weight: 68 kg

DRUGS (2)
  1. CARBOPLATIN [Suspect]
     Dosage: 375MG
     Dates: end: 20110722
  2. TAXOL [Suspect]
     Dosage: 280 MG
     Dates: end: 20110729

REACTIONS (2)
  - PYREXIA [None]
  - FEBRILE NEUTROPENIA [None]
